FAERS Safety Report 5506788-0 (Version None)
Quarter: 2007Q4

REPORT INFORMATION
  Report Type: 
  Country: None (occurrence: None)
  Receive Date: 20071105
  Receipt Date: 20071029
  Transmission Date: 20080405
  Serious: Yes (Other)
  Sender: FDA-Public Use
  Company Number: KR-PFIZER INC-2007091295

PATIENT
  Sex: Male

DRUGS (2)
  1. VIAGRA [Suspect]
     Route: 048
  2. ASTRIX [Concomitant]
     Route: 048

REACTIONS (3)
  - DIZZINESS [None]
  - EYE HAEMORRHAGE [None]
  - HEADACHE [None]
